FAERS Safety Report 4636654-4 (Version None)
Quarter: 2005Q2

REPORT INFORMATION
  Report Type: 
  Country: None (occurrence: None)
  Receive Date: 20050414
  Receipt Date: 20050331
  Transmission Date: 20051028
  Serious: Yes (Other)
  Sender: FDA-Public Use
  Company Number: AWBNIASPAND2004-66

PATIENT
  Age: 33 Year
  Sex: Male

DRUGS (2)
  1. NIASPAN [Suspect]
     Indication: HYPERCHOLESTEROLAEMIA
     Dosage: 375 MG QD PO
     Route: 048
     Dates: start: 20041022, end: 20041101
  2. FLUVASTATIN SODIUM [Concomitant]

REACTIONS (1)
  - CIRCULATORY COLLAPSE [None]
